FAERS Safety Report 4456812-1 (Version None)
Quarter: 2004Q3

REPORT INFORMATION
  Report Type: 
  Country: None (occurrence: None)
  Receive Date: 20040921
  Receipt Date: 20040913
  Transmission Date: 20050211
  Serious: Yes (Other)
  Sender: FDA-Public Use
  Company Number: 8862

PATIENT
  Age: 55 Year
  Sex: Male

DRUGS (2)
  1. METHOTREXATE [Suspect]
     Indication: GASTRIC CANCER
     Dosage: NI
  2. FLUOROURACIL [Suspect]
     Indication: GASTRIC CANCER
     Dosage: NI

REACTIONS (2)
  - HEPATITIS B [None]
  - LIVER DISORDER [None]
